FAERS Safety Report 8111276-1 (Version None)
Quarter: 2012Q1

REPORT INFORMATION
  Report Type: 
  Country: None (occurrence: None)
  Receive Date: 20120203
  Receipt Date: 20110803
  Transmission Date: 20120608
  Serious: No
  Sender: FDA-Public Use
  Company Number: US-GLAXOSMITHKLINE-A0939545A

PATIENT
  Age: 35 Year
  Sex: Female

DRUGS (2)
  1. ORAL CONTRACEPTION [Concomitant]
  2. LAMOTRIGINE [Suspect]
     Dosage: 400MG TWICE PER DAY
     Route: 048

REACTIONS (2)
  - INCORRECT DOSE ADMINISTERED [None]
  - VERTIGO [None]
